FAERS Safety Report 5376566-4 (Version None)
Quarter: 2007Q2

REPORT INFORMATION
  Report Type: 
  Country: None (occurrence: None)
  Receive Date: 20070629
  Receipt Date: 20070619
  Transmission Date: 20071010
  Serious: Yes (Hospitalization)
  Sender: FDA-Public Use
  Company Number: 2007JP002215

PATIENT
  Age: 71 Year
  Sex: Female
  Weight: 46 kg

DRUGS (17)
  1. PROGRAF [Suspect]
     Indication: RHEUMATOID ARTHRITIS
     Dosage: SEE IMAGE
     Route: 048
     Dates: start: 20070117, end: 20070130
  2. PROGRAF [Suspect]
     Indication: RHEUMATOID ARTHRITIS
     Dosage: SEE IMAGE
     Route: 048
     Dates: start: 20070131, end: 20070327
  3. PROGRAF [Suspect]
     Indication: RHEUMATOID ARTHRITIS
     Dosage: SEE IMAGE
     Route: 048
     Dates: start: 20070328, end: 20070423
  4. NEO-AMUNOLL(NON-PYRINE COLD PREPARATION) [Suspect]
     Dosage: 1 G, TID
     Dates: start: 20070414, end: 20070423
  5. HUSTAZOL(CLOPERASTINE HYDROCHLORIDE) [Suspect]
     Dosage: 250 MG, TID
     Dates: start: 20070414, end: 20070423
  6. TRANSAMIN (TRANEXAMIC ACID) [Suspect]
     Dosage: 250 MG, TID
     Dates: start: 20070414, end: 20070423
  7. AZULFIDINE [Concomitant]
  8. SULINDAC [Concomitant]
  9. MERALLURIDE (MERALLURIDE) [Concomitant]
  10. TOCOPHERYL ACETATE [Concomitant]
  11. MUCOSTA (REBAMIPIDE) [Concomitant]
  12. CEPHADOL (DIFENIDOL HYDROCHLORIDE) [Concomitant]
  13. FLUITRAN (TRICHLORMETHIAZIDE) [Concomitant]
  14. ASPIRIN [Concomitant]
  15. VOLTAREN [Concomitant]
  16. GOODMIN (BROTIZOLAM) [Concomitant]
  17. KEISHI-KA-JUTSU-BU-TO [Concomitant]

REACTIONS (6)
  - CONDITION AGGRAVATED [None]
  - EOSINOPHILIC PNEUMONIA [None]
  - HYPEREOSINOPHILIC SYNDROME [None]
  - INTERSTITIAL LUNG DISEASE [None]
  - RHEUMATOID LUNG [None]
  - URTICARIA GENERALISED [None]
